FAERS Safety Report 24843631 (Version 1)
Quarter: 2025Q1

REPORT INFORMATION
  Report Type: Spontaneous
  Country: DE (occurrence: None)
  Receive Date: 20250115
  Receipt Date: 20250115
  Transmission Date: 20250409
  Serious: Yes (Hospitalization)
  Sender: ENCUBE ETHICALS
  Company Number: DE-Encube-001565

PATIENT
  Age: 76 Year
  Sex: Female

DRUGS (3)
  1. TRIAMCINOLONE ACETONIDE [Suspect]
     Active Substance: TRIAMCINOLONE ACETONIDE
     Indication: Neuromyelitis optica spectrum disorder
     Dosage: INJECTION
     Route: 037
     Dates: start: 201906
  2. TRIAMCINOLONE ACETONIDE [Suspect]
     Active Substance: TRIAMCINOLONE ACETONIDE
     Indication: Neuromyelitis optica spectrum disorder
     Route: 037
     Dates: start: 20220421
  3. TRIAMCINOLONE ACETONIDE [Suspect]
     Active Substance: TRIAMCINOLONE ACETONIDE
     Indication: Neuromyelitis optica spectrum disorder
     Route: 037
     Dates: start: 202307

REACTIONS (3)
  - Pleocytosis [Recovered/Resolved]
  - Meningitis chemical [Recovered/Resolved]
  - Off label use [Unknown]
